FAERS Safety Report 19677650 (Version 1)
Quarter: 2021Q3

REPORT INFORMATION
  Report Type: Spontaneous
  Country: FR (occurrence: FR)
  Receive Date: 20210809
  Receipt Date: 20210809
  Transmission Date: 20211014
  Serious: Yes (Hospitalization)
  Sender: FDA-Public Use
  Company Number: FR-ALLERGAN-2127654US

PATIENT
  Sex: Female

DRUGS (9)
  1. BOTULINUM TOXIN TYPE A UNK [Suspect]
     Active Substance: BOTULINUM TOXIN TYPE A
     Indication: SKIN WRINKLING
     Dosage: UNK UNK, SINGLE
  2. AZZALURE [Suspect]
     Active Substance: BOTULINUM TOXIN TYPE A
     Indication: SKIN WRINKLING
     Dosage: 44 UNITS
     Route: 065
     Dates: start: 20210406, end: 20210406
  3. BELOTERO INTENSE [Suspect]
     Active Substance: HYALURONIC ACID
     Indication: SKIN WRINKLING
     Dosage: UNK
  4. BELOTERO INTENSE [Suspect]
     Active Substance: HYALURONIC ACID
     Dosage: UNK
     Dates: start: 20210504, end: 20210504
  5. BELOTERO INTENSE [Suspect]
     Active Substance: HYALURONIC ACID
     Dosage: UNK
  6. AZZALURE [Suspect]
     Active Substance: BOTULINUM TOXIN TYPE A
     Indication: SKIN WRINKLING
     Dosage: UNK UNK, SINGLE
     Route: 065
  7. BOTULINUM TOXIN TYPE A UNK [Suspect]
     Active Substance: BOTULINUM TOXIN TYPE A
     Indication: SKIN WRINKLING
     Dosage: UNK UNK, SINGLE
  8. BELOTERO INTENSE [Suspect]
     Active Substance: HYALURONIC ACID
     Dosage: UNK
  9. KARDEGIC [Concomitant]
     Active Substance: ASPIRIN DL-LYSINE

REACTIONS (13)
  - Vertigo [Unknown]
  - Burning sensation [Unknown]
  - Feeling hot [Unknown]
  - Orthostatic hypotension [Unknown]
  - Off label use [Unknown]
  - General physical health deterioration [Unknown]
  - Headache [Unknown]
  - Asthenia [Unknown]
  - Paraesthesia [Unknown]
  - Ill-defined disorder [Unknown]
  - Formication [Unknown]
  - Autonomic nervous system imbalance [Unknown]
  - Discomfort [Unknown]

NARRATIVE: CASE EVENT DATE: 20210504
